FAERS Safety Report 5566643-7 (Version None)
Quarter: 2007Q4

REPORT INFORMATION
  Report Type: 
  Country: None (occurrence: None)
  Receive Date: 20071219
  Receipt Date: 20050927
  Transmission Date: 20080405
  Serious: Yes (Other)
  Sender: FDA-Public Use
  Company Number: IT-JNJFOC-20071200005

PATIENT
  Age: 57 Year
  Sex: Male
  Weight: 75 kg

DRUGS (1)
  1. HALOPERIDOL [Suspect]
     Indication: BIPOLAR II DISORDER
     Route: 048

REACTIONS (1)
  - WEIGHT INCREASED [None]
